FAERS Safety Report 9162469 (Version 1)
Quarter: 2013Q1

REPORT INFORMATION
  Report Type: Spontaneous
  Country: US (occurrence: US)
  Receive Date: 20130314
  Receipt Date: 20130314
  Transmission Date: 20140127
  Serious: No
  Sender: FDA-Public Use
  Company Number: US-009507513-1303USA004481

PATIENT
  Age: 76 Year
  Sex: Female

DRUGS (5)
  1. SINEMET CR [Suspect]
     Indication: PARKINSON^S DISEASE
     Dosage: UNK
     Route: 048
     Dates: start: 20130214
  2. SINEMET CR [Suspect]
     Indication: NORMAL PRESSURE HYDROCEPHALUS
  3. LODOSYN [Concomitant]
  4. ACIPHEX [Concomitant]
  5. [COMPOSITION UNSPECIFIED] [Concomitant]
     Indication: HYPERTENSION
     Dosage: UNK

REACTIONS (2)
  - Nausea [Recovering/Resolving]
  - Dizziness [Recovering/Resolving]
